FAERS Safety Report 18258893 (Version 2)
Quarter: 2020Q4

REPORT INFORMATION
  Report Type: Spontaneous
  Country: TR (occurrence: TR)
  Receive Date: 20200911
  Receipt Date: 20201002
  Transmission Date: 20210113
  Serious: Yes (Congenital Anomaly)
  Sender: FDA-Public Use
  Company Number: TR-BIOGEN-2020BI00921498

PATIENT

DRUGS (1)
  1. SPINRAZA [Suspect]
     Active Substance: NUSINERSEN
     Indication: PRODUCT USED FOR UNKNOWN INDICATION
     Route: 064

REACTIONS (2)
  - Spinal muscular atrophy [Unknown]
  - Foetal exposure during pregnancy [Recovered/Resolved]
